FAERS Safety Report 13696759 (Version 1)
Quarter: 2017Q2

REPORT INFORMATION
  Report Type: Spontaneous
  Country: US (occurrence: US)
  Receive Date: 20170628
  Receipt Date: 20170628
  Transmission Date: 20170830
  Serious: No
  Sender: FDA-Public Use
  Company Number: US-CELGENEUS-USA-20170605298

PATIENT
  Age: 30 Year
  Sex: Male
  Weight: 83 kg

DRUGS (3)
  1. OTEZLA [Suspect]
     Active Substance: APREMILAST
     Indication: PSORIATIC ARTHROPATHY
     Dosage: 60 MILLIGRAM
     Route: 048
     Dates: start: 20170604
  2. OTEZLA [Suspect]
     Active Substance: APREMILAST
     Indication: PSORIASIS
  3. TAR SHAMPOO [Concomitant]
     Indication: PSORIASIS
     Route: 061

REACTIONS (1)
  - Toothache [Unknown]

NARRATIVE: CASE EVENT DATE: 201706
